FAERS Safety Report 20175388 (Version 1)
Quarter: 2021Q4

REPORT INFORMATION
  Report Type: Other
  Country: CN (occurrence: CN)
  Receive Date: 20211213
  Receipt Date: 20211213
  Transmission Date: 20220304
  Serious: Yes (Other)
  Sender: FDA-Public Use
  Company Number: CN-GE HEALTHCARE-2021CSU006212

PATIENT

DRUGS (3)
  1. OMNISCAN [Suspect]
     Active Substance: GADODIAMIDE
     Indication: Angiogram
     Dosage: 15 ML, SINGLE
     Route: 041
     Dates: start: 20211120, end: 20211120
  2. OMNISCAN [Suspect]
     Active Substance: GADODIAMIDE
     Indication: Magnetic resonance imaging spinal
  3. OMNISCAN [Suspect]
     Active Substance: GADODIAMIDE
     Indication: Product used for unknown indication

REACTIONS (4)
  - Throat tightness [Recovering/Resolving]
  - Face oedema [Recovering/Resolving]
  - Erythema [Recovering/Resolving]
  - Pruritus [Recovering/Resolving]

NARRATIVE: CASE EVENT DATE: 20211120
